FAERS Safety Report 11192817 (Version 1)
Quarter: 2015Q2

REPORT INFORMATION
  Report Type: Spontaneous
  Country: US (occurrence: US)
  Receive Date: 20150616
  Receipt Date: 20150616
  Transmission Date: 20150821
  Serious: Yes (Death, Other)
  Sender: FDA-Public Use
  Company Number: US-CELGENE-USA-2015061397

PATIENT
  Age: 58 Year
  Sex: Male

DRUGS (6)
  1. BRINCIDOFOVIR [Suspect]
     Active Substance: BRINCIDOFOVIR
     Route: 048
  2. PREDNISONE. [Concomitant]
     Active Substance: PREDNISONE
     Indication: PRODUCT USED FOR UNKNOWN INDICATION
     Dosage: 10 MG/D
     Route: 065
  3. BRINCIDOFOVIR [Suspect]
     Active Substance: BRINCIDOFOVIR
     Indication: DIFFUSE LARGE B-CELL LYMPHOMA
     Route: 048
  4. REVLIMID [Suspect]
     Active Substance: LENALIDOMIDE
     Indication: DIFFUSE LARGE B-CELL LYMPHOMA
     Route: 048
  5. SIROLIMUS. [Concomitant]
     Active Substance: SIROLIMUS
     Indication: PRODUCT USED FOR UNKNOWN INDICATION
     Dosage: 2 MG/D
     Route: 065
  6. BRINCIDOFOVIR [Suspect]
     Active Substance: BRINCIDOFOVIR
     Route: 048

REACTIONS (12)
  - Polyomavirus-associated nephropathy [None]
  - Sepsis [Fatal]
  - Kidney fibrosis [None]
  - Diffuse large B-cell lymphoma recurrent [None]
  - Renal tubular atrophy [None]
  - Renal tubular disorder [None]
  - Bacterial sepsis [None]
  - Acute kidney injury [Unknown]
  - Acute graft versus host disease in intestine [None]
  - Graft versus host disease [Unknown]
  - Acute graft versus host disease in skin [None]
  - Cytomegalovirus viraemia [None]
